FAERS Safety Report 13292741 (Version 1)
Quarter: 2017Q1

REPORT INFORMATION
  Report Type: Spontaneous
  Country: US (occurrence: US)
  Receive Date: 20170303
  Receipt Date: 20170303
  Transmission Date: 20170428
  Serious: Yes (Other)
  Sender: FDA-Public Use
  Company Number: US-ASTRAZENECA-2017SE21119

PATIENT
  Age: 63 Year
  Sex: Female

DRUGS (5)
  1. AFINITOR [Concomitant]
     Active Substance: EVEROLIMUS
     Route: 065
     Dates: start: 201402, end: 2016
  2. ARIMIDEX [Suspect]
     Active Substance: ANASTROZOLE
     Route: 048
     Dates: end: 2011
  3. FASLODEX [Concomitant]
     Active Substance: FULVESTRANT
     Route: 030
     Dates: start: 2011, end: 2014
  4. AROMASIN [Suspect]
     Active Substance: EXEMESTANE
     Route: 065
     Dates: start: 201402, end: 2016
  5. IBRANCE [Suspect]
     Active Substance: PALBOCICLIB
     Dosage: 100 MG, DOSING REGIMEN
     Route: 048

REACTIONS (3)
  - Malignant neoplasm progression [Unknown]
  - Metastases to spine [Unknown]
  - Breast cancer metastatic [None]

NARRATIVE: CASE EVENT DATE: 2011
